FAERS Safety Report 9604373 (Version 1)
Quarter: 2013Q4

REPORT INFORMATION
  Report Type: Spontaneous
  Country: MX (occurrence: MX)
  Receive Date: 20131008
  Receipt Date: 20131008
  Transmission Date: 20140711
  Serious: Yes (Other)
  Sender: FDA-Public Use
  Company Number: PHHY2013MX112009

PATIENT
  Sex: Female

DRUGS (4)
  1. TEGRETOL [Suspect]
     Indication: EPILEPSY
     Dosage: 1 DF, EVERY 12 HOURS
     Dates: end: 20110823
  2. TRILEPTAL [Suspect]
     Indication: EPILEPSY
     Dosage: 200 MG, Q12H
     Dates: start: 2011, end: 201301
  3. ASPIRIN [Concomitant]
     Dosage: 1 DF, DAILY
  4. DAILY MULTIVITAMIN [Concomitant]
     Dosage: 01 DF, UNK

REACTIONS (2)
  - Pre-eclampsia [Unknown]
  - Maternal exposure during pregnancy [Unknown]
